FAERS Safety Report 5067481-4 (Version None)
Quarter: 2006Q3

REPORT INFORMATION
  Report Type: 
  Country: None (occurrence: None)
  Receive Date: 20060727
  Receipt Date: 20060719
  Transmission Date: 20061208
  Serious: Yes (Hospitalization)
  Sender: FDA-Public Use
  Company Number: 200610849BNE

PATIENT
  Age: 58 Year
  Sex: Female

DRUGS (5)
  1. SORAFENIB [Suspect]
     Indication: METASTATIC MALIGNANT MELANOMA
  2. DACARBAZINE [Suspect]
     Indication: METASTATIC MALIGNANT MELANOMA
     Dosage: 1900 MG, TOTAL DAILY, INTRAVENOUS
     Route: 042
     Dates: start: 20060717
  3. BENDROFLUAZIDE [Concomitant]
  4. LOSARTAN POSTASSIUM [Concomitant]
  5. ZOPICLONE [Concomitant]

REACTIONS (2)
  - PALPITATIONS [None]
  - SINUS TACHYCARDIA [None]
